FAERS Safety Report 7621440-3 (Version None)
Quarter: 2011Q3

REPORT INFORMATION
  Report Type: 
  Country: None (occurrence: None)
  Receive Date: 20110719
  Receipt Date: 20110718
  Transmission Date: 20111222
  Serious: Yes (Other)
  Sender: FDA-Public Use
  Company Number: ZA-PFIZER INC-2011153782

PATIENT
  Age: 50 Year
  Sex: Female

DRUGS (3)
  1. VARENICLINE TARTRATE [Suspect]
     Dosage: UNK
     Route: 048
     Dates: start: 20110705, end: 20110706
  2. LEVOTHYROXINE SODIUM [Concomitant]
  3. SYMBICORT [Concomitant]

REACTIONS (3)
  - HYPERSENSITIVITY [None]
  - SWELLING [None]
  - URTICARIA [None]
